FAERS Safety Report 10712994 (Version 1)
Quarter: 2015Q1

REPORT INFORMATION
  Report Type: Spontaneous
  Country: US (occurrence: None)
  Receive Date: 20150114
  Receipt Date: 20150114
  Transmission Date: 20150721
  Serious: No
  Sender: FDA-Public Use
  Company Number: None

PATIENT
  Age: 32 Year
  Sex: Female
  Weight: 53.98 kg

DRUGS (1)
  1. HYDROCORTISONE. [Suspect]
     Active Substance: HYDROCORTISONE
     Dosage: 2 PILLS 9AM 1/2 PILL 3-4 PM ?TWICE DAILY?TAKEN BY MOUTH
     Route: 048

REACTIONS (4)
  - Quality of life decreased [None]
  - Personality change [None]
  - Family stress [None]
  - Mood altered [None]

NARRATIVE: CASE EVENT DATE: 20141216
